FAERS Safety Report 10191099 (Version 9)
Quarter: 2015Q2

REPORT INFORMATION
  Report Type: Report from Study
  Country: JP (occurrence: JP)
  Receive Date: 20140523
  Receipt Date: 20150522
  Transmission Date: 20150821
  Serious: Yes (Hospitalization, Other)
  Sender: FDA-Public Use
  Company Number: PHHY2014JP041848

PATIENT
  Age: 70 Year
  Sex: Female

DRUGS (19)
  1. LIMAS [Concomitant]
     Active Substance: LITHIUM CARBONATE
     Indication: SCHIZOPHRENIA
     Dosage: 400 MG
     Route: 048
     Dates: start: 20140724
  2. SENNARIDE [Concomitant]
     Active Substance: SENNOSIDES A AND B
     Dosage: 24 MG, QD
     Route: 048
     Dates: start: 20140814
  3. AKINETON [Concomitant]
     Active Substance: BIPERIDEN HYDROCHLORIDE
     Indication: PROPHYLAXIS
     Dosage: 3 MG, QD
     Route: 048
     Dates: start: 20140319, end: 20140326
  4. AKINETON [Concomitant]
     Active Substance: BIPERIDEN HYDROCHLORIDE
     Dosage: 6 MG, QD
     Route: 048
     Dates: start: 20140807, end: 20141008
  5. CLOZARIL [Suspect]
     Active Substance: CLOZAPINE
     Dosage: 400 MG, QD
     Route: 048
     Dates: start: 20140319, end: 20140804
  6. SENNARIDE [Concomitant]
     Active Substance: SENNOSIDES A AND B
     Indication: CONSTIPATION
     Dosage: 12 MG, QD
     Route: 048
     Dates: start: 20140807, end: 20140813
  7. BENZALIN [Concomitant]
     Active Substance: NITRAZEPAM
     Indication: SCHIZOPHRENIA
     Dosage: 5 MG
     Route: 048
     Dates: start: 20140319
  8. AKINETON [Concomitant]
     Active Substance: BIPERIDEN HYDROCHLORIDE
     Dosage: 3 MG, QD
     Route: 048
     Dates: start: 20140805, end: 20140806
  9. CLOZARIL [Suspect]
     Active Substance: CLOZAPINE
     Indication: SCHIZOPHRENIA
     Dosage: UNK
     Route: 048
     Dates: start: 20131010
  10. AMLODIPINA//AMLODIPINE BESILATE [Concomitant]
     Indication: HYPERTENSION
     Dosage: 5 MG
     Route: 048
     Dates: start: 20140319
  11. PYRETHIA//PROMETHAZINE HYDROCHLORIDE [Concomitant]
     Indication: SCHIZOPHRENIA
     Dosage: 100 MG
     Route: 048
     Dates: start: 20140319
  12. LEUCON [Concomitant]
     Indication: PROPHYLAXIS
     Dosage: 30 MG, QD
     Route: 048
     Dates: start: 20140530, end: 20140604
  13. AKINETON [Concomitant]
     Active Substance: BIPERIDEN HYDROCHLORIDE
     Dosage: 1 MG, QD
     Route: 048
     Dates: start: 20140327, end: 20140328
  14. CLOZARIL [Suspect]
     Active Substance: CLOZAPINE
     Dosage: 300 MG
     Route: 048
     Dates: start: 20140805, end: 20140827
  15. CLOZARIL [Suspect]
     Active Substance: CLOZAPINE
     Dosage: 200 MG
     Route: 048
     Dates: start: 20140828, end: 20140918
  16. CLOZARIL [Suspect]
     Active Substance: CLOZAPINE
     Dosage: 200 MG
     Route: 048
     Dates: start: 20141007
  17. CLOZARIL [Suspect]
     Active Substance: CLOZAPINE
     Dosage: 150 MG
     Route: 048
     Dates: start: 20140919, end: 20141006
  18. LEUCON [Concomitant]
     Dosage: 60 MG, QD
     Route: 048
     Dates: start: 20140605
  19. AKINETON [Concomitant]
     Active Substance: BIPERIDEN HYDROCHLORIDE
     Dosage: 3 MG, QD
     Route: 048
     Dates: start: 20141009

REACTIONS (11)
  - Tibia fracture [Recovered/Resolved]
  - White blood cell count decreased [Unknown]
  - Red blood cell count decreased [Not Recovered/Not Resolved]
  - Pyrexia [Recovered/Resolved]
  - Haemoglobin decreased [Not Recovered/Not Resolved]
  - Fall [Recovered/Resolved]
  - Lymphocyte count decreased [Not Recovered/Not Resolved]
  - Blood glucose increased [Unknown]
  - Parkinsonism [Recovering/Resolving]
  - Muscle rigidity [Unknown]
  - Tremor [Unknown]

NARRATIVE: CASE EVENT DATE: 20140319
